FAERS Safety Report 6816779-5 (Version None)
Quarter: 2010Q3

REPORT INFORMATION
  Report Type: 
  Country: None (occurrence: None)
  Receive Date: 20100706
  Receipt Date: 20100702
  Transmission Date: 20110219
  Serious: Yes (Death)
  Sender: FDA-Public Use
  Company Number: PHHY2010BR26952

PATIENT
  Sex: Female
  Weight: 58 kg

DRUGS (8)
  1. EXELON [Suspect]
     Indication: DEMENTIA ALZHEIMER'S TYPE
     Dosage: 1.5 MG, BID
     Route: 048
     Dates: start: 20100301
  2. EXELON [Suspect]
     Dosage: 3 MG, BID
     Route: 048
  3. ZANTAC [Concomitant]
     Indication: GASTRIC DISORDER
     Dosage: 1 DF, QD
     Route: 048
  4. IDAPTAN [Concomitant]
     Dosage: UNK
     Route: 048
  5. CALCIUM CARBONATE [Concomitant]
     Indication: OSTEOPOROSIS
     Dosage: UNK
     Route: 048
     Dates: start: 20000101
  6. FOSAMAX [Concomitant]
     Dosage: 1 DF, QW
     Route: 048
  7. ANTIDEPRESSANTS [Concomitant]
     Indication: PAIN
  8. ANTIDEPRESSANTS [Concomitant]
     Indication: ANXIETY

REACTIONS (1)
  - CEREBROVASCULAR ACCIDENT [None]
